FAERS Safety Report 7411064-5 (Version None)
Quarter: 2011Q2

REPORT INFORMATION
  Report Type: 
  Country: None (occurrence: None)
  Receive Date: 20110413
  Receipt Date: 20110408
  Transmission Date: 20111010
  Serious: Yes (Death)
  Sender: FDA-Public Use
  Company Number: JP-ASTELLAS-2011JP002488

PATIENT
  Age: 82 Year
  Sex: Male

DRUGS (2)
  1. RHEUMATREX [Concomitant]
     Route: 065
  2. PROGRAF [Suspect]
     Indication: RHEUMATOID ARTHRITIS
     Dosage: 2 MG, UNKNOWN/D
     Route: 048
     Dates: end: 20110301

REACTIONS (1)
  - PNEUMONIA [None]
